FAERS Safety Report 16359763 (Version 2)
Quarter: 2019Q2

REPORT INFORMATION
  Report Type: Spontaneous
  Country: US (occurrence: US)
  Receive Date: 20190528
  Receipt Date: 20190625
  Transmission Date: 20190711
  Serious: No
  Sender: FDA-Public Use
  Company Number: US-B.I. PHARMACEUTICALS,INC./RIDGEFIELD-2019-BI-022869

PATIENT
  Age: 60 Year
  Sex: Female

DRUGS (1)
  1. SPIRIVA RESPIMAT [Suspect]
     Active Substance: TIOTROPIUM BROMIDE
     Indication: LUNG LOBECTOMY
     Route: 055
     Dates: start: 2016

REACTIONS (5)
  - Throat tightness [Recovered/Resolved]
  - Feeling abnormal [Recovered/Resolved]
  - Device malfunction [Unknown]
  - Off label use [Unknown]
  - Chest discomfort [Recovered/Resolved]

NARRATIVE: CASE EVENT DATE: 201905
